FAERS Safety Report 18356430 (Version 1)
Quarter: 2020Q4

REPORT INFORMATION
  Report Type: Spontaneous
  Country: FR (occurrence: FR)
  Receive Date: 20201007
  Receipt Date: 20201007
  Transmission Date: 20210114
  Serious: Yes (Other)
  Sender: FDA-Public Use
  Company Number: FR-PFIZER INC-2020384004

PATIENT
  Age: 60 Year
  Sex: Male
  Weight: 57.5 kg

DRUGS (8)
  1. MIDAZOLAM MYLAN [Suspect]
     Active Substance: MIDAZOLAM HYDROCHLORIDE
     Indication: SEDATION
     Dosage: 5 MG, FREQUENCY 1H
     Route: 042
     Dates: start: 20200915, end: 20200916
  2. CISATRACURIUM MYLAN [Suspect]
     Active Substance: CISATRACURIUM
     Dosage: 10 MG, SINGLE
     Route: 042
     Dates: start: 20200915, end: 20200915
  3. ETOMIDATE LIPURO [Suspect]
     Active Substance: ETOMIDATE
     Indication: ENDOTRACHEAL INTUBATION
     Dosage: 35 MG, SINGLE
     Route: 042
     Dates: start: 20200915, end: 20200915
  4. ROCURONIUM [Suspect]
     Active Substance: ROCURONIUM BROMIDE
     Indication: ENDOTRACHEAL INTUBATION
     Dosage: 50 MG, SINGLE
     Route: 042
     Dates: start: 20200915, end: 20200915
  5. NORADRENALINE RENAUDIN [Suspect]
     Active Substance: NOREPINEPHRINE BITARTRATE
     Indication: HAEMODYNAMIC INSTABILITY
     Dosage: 1.5 MG, FREQUENCY 1 H
     Route: 042
     Dates: start: 20200915, end: 20200916
  6. RIVOTRIL [Suspect]
     Active Substance: CLONAZEPAM
     Indication: ENDOTRACHEAL INTUBATION
     Dosage: 2 MG, SINGLE
     Dates: start: 20200915, end: 20200915
  7. PRODILANTIN [Suspect]
     Active Substance: FOSPHENYTOIN SODIUM
     Indication: TONIC CLONIC MOVEMENTS
     Dosage: 1200 MG, SINGLE
     Route: 042
     Dates: start: 20200915, end: 20200915
  8. SUFENTANIL MYLAN [Suspect]
     Active Substance: SUFENTANIL
     Indication: SEDATION
     Dosage: 20 UG, FREQUENCY 1 H
     Route: 042
     Dates: start: 20200915, end: 20200916

REACTIONS (5)
  - Electrocardiogram QRS complex prolonged [Recovered/Resolved]
  - Defect conduction intraventricular [Recovered/Resolved]
  - Troponin I increased [Recovering/Resolving]
  - Electrocardiogram P wave abnormal [Recovered/Resolved]
  - Conduction disorder [Recovered/Resolved]

NARRATIVE: CASE EVENT DATE: 20200916
